FAERS Safety Report 14141279 (Version 1)
Quarter: 2017Q4

REPORT INFORMATION
  Report Type: Spontaneous
  Country: US (occurrence: None)
  Receive Date: 20171028
  Receipt Date: 20171028
  Transmission Date: 20180321
  Serious: Yes (Hospitalization)
  Sender: FDA-Public Use
  Company Number: None

PATIENT
  Age: 75 Year
  Sex: Male
  Weight: 69.4 kg

DRUGS (2)
  1. CEFTRIAXONE. [Suspect]
     Active Substance: CEFTRIAXONE
     Indication: PYELONEPHRITIS
     Route: 042
     Dates: start: 20170908, end: 20170912
  2. OMEPRAZOLE. [Suspect]
     Active Substance: OMEPRAZOLE
     Indication: GASTROOESOPHAGEAL REFLUX DISEASE
     Route: 048
     Dates: start: 20170803, end: 20170915

REACTIONS (10)
  - Urinary tract infection [None]
  - Septic shock [None]
  - Acute kidney injury [None]
  - Pyelonephritis [None]
  - Renal tubular necrosis [None]
  - Tubulointerstitial nephritis [None]
  - Cellulitis [None]
  - Sepsis [None]
  - Nephropathy [None]
  - Bacteraemia [None]

NARRATIVE: CASE EVENT DATE: 20170920
